FAERS Safety Report 7098581 (Version 3)
Quarter: 2012Q4

REPORT INFORMATION
  Report Type: 
  Country: US (occurrence: US)
  Receive Date: 20050204
  Receipt Date: 20121015
  Transmission Date: 20130627
  Serious: Yes (Other)
  Sender: FDA-Public Use
  Company Number: US-PFIZER INC-2005021730

PATIENT
  Age: 62 Year
  Sex: Female

DRUGS (11)
  1. PROVERA [Suspect]
     Indication: HORMONE REPLACEMENT THERAPY
     Dosage: UNK
     Dates: start: 1997, end: 1998
  2. PREMARIN [Suspect]
     Indication: HORMONE REPLACEMENT THERAPY
     Dosage: 0.625 mg, UNK
     Dates: start: 1997, end: 20000516
  3. PREMPRO [Suspect]
     Indication: HORMONE REPLACEMENT THERAPY
     Dosage: 5mg/0.625mg
     Dates: start: 20000516, end: 200304
  4. MEDROXYPROGESTERONE ACETATE [Suspect]
     Indication: HORMONE REPLACEMENT THERAPY
     Dosage: UNK
  5. MEDROXYPROGESTERONE ACETATE [Suspect]
     Indication: HORMONE REPLACEMENT THERAPY
     Dosage: 5 mg, UNK
     Dates: start: 19960709, end: 20000330
  6. MEDROXYPROGESTERONE ACETATE [Suspect]
     Dosage: 5 mg, UNK
     Dates: start: 20000516, end: 20010116
  7. ESTROGENS CONJUGATED [Suspect]
     Indication: HORMONE REPLACEMENT THERAPY
     Dosage: 2.5 mg, UNK
     Dates: end: 1997
  8. METOPROLOL [Concomitant]
     Indication: HYPERTENSION
     Dosage: 50 mg, UNK
     Dates: start: 1982
  9. HYDROCHLOROTHIAZIDE [Concomitant]
     Indication: HYPERTENSION
     Dosage: 25 mg, UNK
     Dates: start: 1982
  10. VERAPAMIL [Concomitant]
     Indication: HYPERTENSION
     Dosage: 240 mg, UNK
     Dates: start: 1982
  11. MECLIZINE [Concomitant]
     Indication: VERTIGO
     Dosage: 25 mg, UNK
     Dates: start: 1999

REACTIONS (1)
  - Breast cancer female [Unknown]
